FAERS Safety Report 5462991-X (Version None)
Quarter: 2007Q3

REPORT INFORMATION
  Report Type: 
  Country: None (occurrence: None)
  Receive Date: 20070920
  Receipt Date: 20070910
  Transmission Date: 20080115
  Serious: Yes (Death)
  Sender: FDA-Public Use
  Company Number: GR-AMGEN-UK227821

PATIENT
  Age: 7 Year
  Sex: Female
  Weight: 25 kg

DRUGS (8)
  1. KINERET [Suspect]
     Indication: VASCULITIS
     Route: 058
     Dates: start: 20060322, end: 20070420
  2. PREZOLON [Suspect]
     Route: 048
     Dates: start: 20010620, end: 20020515
  3. CYCLOPHOSPHAMIDE [Suspect]
     Route: 042
     Dates: start: 20070427, end: 20070427
  4. METHYLPREDNISOLONE [Suspect]
     Route: 042
     Dates: start: 20070503, end: 20070505
  5. ETANERCEPT [Suspect]
     Route: 065
  6. AZATHIOPRINE [Suspect]
     Route: 065
  7. METHOTREXATE [Suspect]
     Route: 065
  8. CYCLOSPORINE [Suspect]
     Route: 065
     Dates: start: 20070502, end: 20070504

REACTIONS (3)
  - HISTIOCYTOSIS HAEMATOPHAGIC [None]
  - IMMUNOSUPPRESSION [None]
  - PARVOVIRUS INFECTION [None]
